FAERS Safety Report 5382856-1 (Version None)
Quarter: 2007Q3

REPORT INFORMATION
  Report Type: 
  Country: None (occurrence: None)
  Receive Date: 20070710
  Receipt Date: 20070703
  Transmission Date: 20080115
  Serious: Yes (Other)
  Sender: FDA-Public Use
  Company Number: US-BAYER-200613245BWH

PATIENT
  Age: 71 Year
  Sex: Male
  Weight: 108 kg

DRUGS (9)
  1. NEXAVAR [Suspect]
     Indication: RENAL CELL CARCINOMA STAGE UNSPECIFIED
     Dosage: TOTAL DAILY DOSE: 400 MG  UNIT DOSE: 200 MG
     Route: 048
     Dates: start: 20060101
  2. NEXAVAR [Suspect]
     Route: 048
     Dates: start: 20060501
  3. NEXAVAR [Suspect]
     Dosage: TOTAL DAILY DOSE: 400 MG  UNIT DOSE: 200 MG
     Route: 048
     Dates: start: 20060301, end: 20060501
  4. NEXAVAR [Suspect]
     Dosage: AS USED: 200/400 MG  UNIT DOSE: 200 MG
     Route: 048
     Dates: start: 20060101, end: 20060101
  5. NEXAVAR [Suspect]
     Dosage: TOTAL DAILY DOSE: 800 MG  UNIT DOSE: 200 MG
     Route: 048
     Dates: start: 20060202, end: 20060101
  6. ACEON [Concomitant]
     Dosage: TOTAL DAILY DOSE: 4 MG
     Route: 048
  7. METFORMIN HYDROCHLORIDE [Concomitant]
     Dosage: TOTAL DAILY DOSE: 500 MG
     Route: 048
  8. ZOCOR [Concomitant]
     Dosage: TOTAL DAILY DOSE: 40 MG
     Route: 048
  9. LISINOPRIL [Concomitant]
     Dosage: TOTAL DAILY DOSE: 20 MG  UNIT DOSE: 20 MG
     Route: 048

REACTIONS (17)
  - BLISTER [None]
  - BLOOD ALKALINE PHOSPHATASE INCREASED [None]
  - BONE PAIN [None]
  - DIARRHOEA [None]
  - DIZZINESS [None]
  - EPISTAXIS [None]
  - FATIGUE [None]
  - GAIT DISTURBANCE [None]
  - HEADACHE [None]
  - HYPERTENSION [None]
  - HYPOAESTHESIA [None]
  - HYPOAESTHESIA ORAL [None]
  - MUSCLE SPASMS [None]
  - NEPHROTIC SYNDROME [None]
  - PAIN IN EXTREMITY [None]
  - PALMAR-PLANTAR ERYTHRODYSAESTHESIA SYNDROME [None]
  - PROTEINURIA [None]
